FAERS Safety Report 5506599-6 (Version None)
Quarter: 2007Q4

REPORT INFORMATION
  Report Type: 
  Country: None (occurrence: None)
  Receive Date: 20071101
  Receipt Date: 20071024
  Transmission Date: 20080405
  Serious: Yes (Other)
  Sender: FDA-Public Use
  Company Number: CHPA2007US11198

PATIENT
  Age: 24 Month
  Sex: Female

DRUGS (1)
  1. TRIAMINIC CHEST CONGESTION CITRUS 4 OZ (NCH) (PSEUDOEPHEDRINE, GUAIFEN [Suspect]
     Indication: NASAL CONGESTION
     Dosage: 1 TSP, EVERY 4 TO 5 HOURS, ORAL
     Route: 048
     Dates: start: 20071020, end: 20071023

REACTIONS (2)
  - CONSTIPATION [None]
  - CRYING [None]
